FAERS Safety Report 18312872 (Version 1)
Quarter: 2020Q3

REPORT INFORMATION
  Report Type: Spontaneous
  Country: US (occurrence: US)
  Receive Date: 20200925
  Receipt Date: 20200925
  Transmission Date: 20201103
  Serious: Yes (Other)
  Sender: FDA-Public Use
  Company Number: US-GILEAD-2020-0495764

PATIENT
  Sex: Male

DRUGS (2)
  1. VIREAD [Suspect]
     Active Substance: TENOFOVIR DISOPROXIL FUMARATE
     Indication: PRODUCT USED FOR UNKNOWN INDICATION
     Dosage: UNK
     Route: 065
     Dates: end: 2010
  2. TRUVADA [Suspect]
     Active Substance: EMTRICITABINE\TENOFOVIR DISOPROXIL FUMARATE
     Indication: PRODUCT USED FOR UNKNOWN INDICATION
     Dosage: UNK
     Route: 065
     Dates: end: 2010

REACTIONS (18)
  - Hip arthroplasty [Unknown]
  - Nephrolithiasis [Not Recovered/Not Resolved]
  - Renal injury [Not Recovered/Not Resolved]
  - Bone loss [Unknown]
  - Poor peripheral circulation [Unknown]
  - Disability [Not Recovered/Not Resolved]
  - Dehydration [Not Recovered/Not Resolved]
  - Joint injury [Unknown]
  - Osteoporosis [Unknown]
  - Blood potassium decreased [Unknown]
  - Bone density decreased [Unknown]
  - Renal pain [Not Recovered/Not Resolved]
  - Necrosis [Unknown]
  - Blood creatinine increased [Unknown]
  - Limb injury [Unknown]
  - Renal failure [Unknown]
  - Rib fracture [Unknown]
  - Gait disturbance [Unknown]
